FAERS Safety Report 4836565-5 (Version None)
Quarter: 2005Q4

REPORT INFORMATION
  Report Type: 
  Country: None (occurrence: None)
  Receive Date: 20051121
  Receipt Date: 20051110
  Transmission Date: 20060501
  Serious: Yes (Other)
  Sender: FDA-Public Use
  Company Number: 2005154116

PATIENT
  Age: 62 Year
  Sex: Female
  Weight: 65 kg

DRUGS (3)
  1. GENOTROPIN [Suspect]
     Indication: HYPOPITUITARISM
     Dosage: 1.2 MG (DAILY), SUBCUTANEOUS
     Route: 058
     Dates: start: 19980701, end: 20051108
  2. LEVOTHYROXINE SODIUM [Concomitant]
  3. CORTEF [Concomitant]

REACTIONS (1)
  - NEOPLASM PROGRESSION [None]
